FAERS Safety Report 8511788-2 (Version None)
Quarter: 2012Q3

REPORT INFORMATION
  Report Type: 
  Country: None (occurrence: None)
  Receive Date: 20120716
  Receipt Date: 20120711
  Transmission Date: 20120928
  Serious: Yes (Life-Threatening, Hospitalization, Other)
  Sender: FDA-Public Use
  Company Number: PHHY2012ES060243

PATIENT
  Age: 73 Year
  Sex: Female

DRUGS (3)
  1. CO-VALS [Suspect]
     Indication: HYPERTENSION
  2. LEXATIN [Concomitant]
     Dosage: 1.5 MG, UNK
     Route: 048
  3. ALIPZA [Suspect]
     Indication: HYPERCHOLESTEROLAEMIA
     Dosage: 2 MG, QD
     Route: 048
     Dates: start: 20120202, end: 20120407

REACTIONS (13)
  - BLOOD CREATININE DECREASED [None]
  - URINARY TRACT INFECTION [None]
  - ASTHENIA [None]
  - BODY MASS INDEX INCREASED [None]
  - METABOLIC ACIDOSIS [None]
  - GLOMERULAR FILTRATION RATE DECREASED [None]
  - DEHYDRATION [None]
  - RENAL CYST [None]
  - RENAL FAILURE [None]
  - ANAEMIA [None]
  - HYPONATRAEMIA [None]
  - FATIGUE [None]
  - BASE EXCESS INCREASED [None]
